FAERS Safety Report 19446521 (Version 1)
Quarter: 2021Q2

REPORT INFORMATION
  Report Type: Spontaneous
  Country: US (occurrence: US)
  Receive Date: 20210622
  Receipt Date: 20210622
  Transmission Date: 20210717
  Serious: No
  Sender: FDA-Public Use
  Company Number: US-SA-2021SA202771

PATIENT
  Sex: Male

DRUGS (21)
  1. LINZESS [Concomitant]
     Active Substance: LINACLOTIDE
  2. PROAIR HFA [Concomitant]
     Active Substance: ALBUTEROL SULFATE
  3. ADVAIR HFA [Concomitant]
     Active Substance: FLUTICASONE PROPIONATE\SALMETEROL XINAFOATE
  4. FUROSEMIDE. [Concomitant]
     Active Substance: FUROSEMIDE
  5. CLOPIDOGREL [Concomitant]
     Active Substance: CLOPIDOGREL BISULFATE
  6. HYDROQUINONE. [Concomitant]
     Active Substance: HYDROQUINONE
  7. ANDROGEL [Concomitant]
     Active Substance: TESTOSTERONE
  8. ATORVASTATIN [Concomitant]
     Active Substance: ATORVASTATIN
  9. FLOVENT [Concomitant]
     Active Substance: FLUTICASONE PROPIONATE
  10. METOPROLOL. [Concomitant]
     Active Substance: METOPROLOL
  11. RANEXA [Concomitant]
     Active Substance: RANOLAZINE
  12. SYNTHROID [Concomitant]
     Active Substance: LEVOTHYROXINE SODIUM
  13. ULORIC [Concomitant]
     Active Substance: FEBUXOSTAT
  14. THEOPHYLLINE [Concomitant]
     Active Substance: THEOPHYLLINE ANHYDROUS
  15. EPLERENONE. [Concomitant]
     Active Substance: EPLERENONE
  16. ESOMEPRAZOLE. [Concomitant]
     Active Substance: ESOMEPRAZOLE MAGNESIUM
  17. LISINOPRIL. [Concomitant]
     Active Substance: LISINOPRIL
  18. NIZATIDINE. [Concomitant]
     Active Substance: NIZATIDINE
  19. SINGULAIR [Concomitant]
     Active Substance: MONTELUKAST SODIUM
  20. SPIRIVA [Concomitant]
     Active Substance: TIOTROPIUM BROMIDE MONOHYDRATE
  21. DUPIXENT [Suspect]
     Active Substance: DUPILUMAB
     Indication: SEASONAL ALLERGY
     Route: 058

REACTIONS (2)
  - Product use in unapproved indication [Unknown]
  - Product dose omission issue [Unknown]
